FAERS Safety Report 9214934 (Version 1)
Quarter: 2013Q2

REPORT INFORMATION
  Report Type: Report from Study
  Country: CA (occurrence: CA)
  Receive Date: 20130405
  Receipt Date: 20130405
  Transmission Date: 20140414
  Serious: Yes (Other)
  Sender: FDA-Public Use
  Company Number: CA-AMGEN-CANCT2010006140

PATIENT
  Age: 72 Year
  Sex: Male

DRUGS (2)
  1. DENOSUMAB [Suspect]
     Indication: METASTASES TO BONE
     Dosage: UNK
     Route: 058
     Dates: start: 20060907, end: 20100415
  2. ZOLADEX [Concomitant]
     Dosage: 10.8 MG, Q3MO
     Route: 058
     Dates: start: 200311

REACTIONS (1)
  - Osteonecrosis of jaw [Recovered/Resolved]
